FAERS Safety Report 7229693-0 (Version None)
Quarter: 2011Q1

REPORT INFORMATION
  Report Type: 
  Country: None (occurrence: None)
  Receive Date: 20110117
  Receipt Date: 20110110
  Transmission Date: 20110831
  Serious: Yes (Other)
  Sender: FDA-Public Use
  Company Number: US-JNJFOC-20051102788

PATIENT
  Sex: Female
  Weight: 84.82 kg

DRUGS (17)
  1. RISPERDAL [Suspect]
     Indication: ATTENTION DEFICIT/HYPERACTIVITY DISORDER
     Route: 048
     Dates: end: 20040601
  2. SEROQUEL [Suspect]
     Indication: AFFECTIVE DISORDER
     Dates: start: 20020301, end: 20040601
  3. CLONIDINE [Concomitant]
  4. RISPERDAL [Suspect]
     Indication: AGGRESSION
     Route: 048
     Dates: end: 20040601
  5. OXCARBAZEPINE [Concomitant]
  6. RISPERDAL [Suspect]
     Route: 048
     Dates: end: 20040601
  7. RISPERDAL [Suspect]
     Route: 048
     Dates: end: 20040601
  8. SEROQUEL [Suspect]
     Indication: ATTENTION DEFICIT/HYPERACTIVITY DISORDER
     Dates: start: 20020301, end: 20040601
  9. RISPERDAL [Suspect]
     Route: 048
     Dates: end: 20040601
  10. RISPERDAL [Suspect]
     Indication: AFFECTIVE DISORDER
     Route: 048
     Dates: end: 20040601
  11. ZYPREXA [Suspect]
     Indication: ATTENTION DEFICIT/HYPERACTIVITY DISORDER
     Dates: start: 20020301, end: 20040601
  12. ZYPREXA [Suspect]
     Indication: AFFECTIVE DISORDER
     Dates: start: 20020301, end: 20040601
  13. REMERON [Concomitant]
  14. RISPERDAL [Suspect]
     Route: 048
     Dates: end: 20040601
  15. CONCERTA [Concomitant]
  16. RISPERDAL [Suspect]
     Route: 048
     Dates: end: 20040601
  17. RISPERDAL [Suspect]
     Route: 048
     Dates: end: 20040601

REACTIONS (3)
  - DIABETES MELLITUS [None]
  - WEIGHT INCREASED [None]
  - GALACTORRHOEA [None]
